FAERS Safety Report 19472587 (Version 1)
Quarter: 2021Q2

REPORT INFORMATION
  Report Type: Spontaneous
  Country: TH (occurrence: TH)
  Receive Date: 20210629
  Receipt Date: 20210629
  Transmission Date: 20210717
  Serious: Yes (Hospitalization, Other)
  Sender: FDA-Public Use
  Company Number: TH-ORPHANEU-2021002380

PATIENT

DRUGS (1)
  1. UNSPECIFIED PASIREOTIDE [Suspect]
     Active Substance: PASIREOTIDE
     Indication: CUSHING^S SYNDROME

REACTIONS (4)
  - Seizure [Unknown]
  - Drug effective for unapproved indication [Recovered/Resolved]
  - Adrenal insufficiency [Recovered/Resolved]
  - Off label use [Recovered/Resolved]
